FAERS Safety Report 24082728 (Version 2)
Quarter: 2024Q3

REPORT INFORMATION
  Report Type: Report from Study
  Country: CA (occurrence: CA)
  Receive Date: 20240712
  Receipt Date: 20240830
  Transmission Date: 20241017
  Serious: Yes (Other)
  Sender: GLAXOSMITHKLINE
  Company Number: CA-GLAXOSMITHKLINE-CA2024001605

PATIENT

DRUGS (14)
  1. BELIMUMAB [Suspect]
     Active Substance: BELIMUMAB
     Indication: Systemic lupus erythematosus
     Dosage: 10 MG/KG, Q4W
     Route: 042
     Dates: start: 20171228
  2. BELIMUMAB [Suspect]
     Active Substance: BELIMUMAB
     Dosage: 920 MG, Q4W
  3. BELIMUMAB [Suspect]
     Active Substance: BELIMUMAB
     Dosage: 920 MG, Q4W
  4. BELIMUMAB [Suspect]
     Active Substance: BELIMUMAB
     Dosage: 10 MG/KG, Q4W
     Route: 042
  5. BELIMUMAB [Suspect]
     Active Substance: BELIMUMAB
     Dosage: 10 MG/KG, Q4W
     Route: 042
  6. BELIMUMAB [Suspect]
     Active Substance: BELIMUMAB
     Indication: Systemic lupus erythematosus
     Dosage: 10 MG/KG, Q4W
     Route: 042
  7. PREDNISONE [Concomitant]
     Active Substance: PREDNISONE
     Indication: Product used for unknown indication
     Dosage: 2 MG, QD
  8. PREDNISONE [Concomitant]
     Active Substance: PREDNISONE
     Dosage: 10 MG, QD
  9. CELLCEPT [Concomitant]
     Active Substance: MYCOPHENOLATE MOFETIL
     Indication: Product used for unknown indication
     Dosage: 1000 MG, BID
  10. CELLCEPT [Concomitant]
     Active Substance: MYCOPHENOLATE MOFETIL
     Dosage: 100 MG
     Route: 048
  11. HYDROXYCHLOROQUINE [Concomitant]
     Active Substance: HYDROXYCHLOROQUINE
     Indication: Product used for unknown indication
     Dosage: 400 MG, QD
     Route: 048
  12. HYDROXYCHLOROQUINE [Concomitant]
     Active Substance: HYDROXYCHLOROQUINE
     Dosage: 200 MG
  13. BENADRYL [Concomitant]
     Active Substance: DIPHENHYDRAMINE HYDROCHLORIDE
     Indication: Product used for unknown indication
     Dosage: 25 MG, PRETREATMENT MEDICATION
  14. TYLENOL [Concomitant]
     Active Substance: ACETAMINOPHEN
     Indication: Product used for unknown indication
     Dosage: 650 MG, PRETREATMENT MEDICATION

REACTIONS (5)
  - Pneumonia [Recovered/Resolved]
  - Pericarditis [Unknown]
  - Illness [Recovered/Resolved]
  - Chest pain [Unknown]
  - Inappropriate schedule of product administration [Unknown]

NARRATIVE: CASE EVENT DATE: 20231226
